FAERS Safety Report 4299011-9 (Version None)
Quarter: 2004Q1

REPORT INFORMATION
  Report Type: 
  Country: None (occurrence: None)
  Receive Date: 20040219
  Receipt Date: 20040210
  Transmission Date: 20041129
  Serious: Yes (Hospitalization, Disabling, Other)
  Sender: FDA-Public Use
  Company Number: FR-BRISTOL-MYERS SQUIBB COMPANY-12501979

PATIENT
  Age: 48 Year
  Sex: Male

DRUGS (2)
  1. VASTEN TABS 40 MG [Suspect]
     Indication: HYPERCHOLESTEROLAEMIA
     Route: 048
     Dates: start: 20020301, end: 20021201
  2. CO-RENITEC [Concomitant]
     Route: 048

REACTIONS (2)
  - TENDON RUPTURE [None]
  - TENDONITIS [None]
